FAERS Safety Report 9744874 (Version 2)
Quarter: 2014Q1

REPORT INFORMATION
  Report Type: Report from Study
  Country: US (occurrence: US)
  Receive Date: 20131211
  Receipt Date: 20140107
  Transmission Date: 20141002
  Serious: Yes (Hospitalization)
  Sender: FDA-Public Use
  Company Number: US-ROCHE-1317915

PATIENT
  Sex: Female

DRUGS (2)
  1. XELODA [Suspect]
     Indication: COLON CANCER
     Dosage: 14 DAYS ON AND 7 DAYS OFF,  3 TABS 500MG TWICE A DAY 2 TABS 150MG TWICE A DAY
     Route: 048
  2. XELODA [Suspect]
     Dosage: 3 TABLETS 500 MG TWCIE A DAY
     Route: 048

REACTIONS (1)
  - Full blood count decreased [Unknown]
